FAERS Safety Report 19591888 (Version 3)
Quarter: 2021Q4

REPORT INFORMATION
  Report Type: Report from Study
  Country: US (occurrence: US)
  Receive Date: 20210721
  Receipt Date: 20211003
  Transmission Date: 20220303
  Serious: Yes (Hospitalization)
  Sender: FDA-Public Use
  Company Number: NVSC2021US156041

PATIENT
  Age: 66 Year
  Sex: Female
  Weight: 69 kg

DRUGS (2)
  1. COSENTYX [Suspect]
     Active Substance: SECUKINUMAB
     Indication: Psoriasis
     Dosage: 150 MG (LOADING DOSE)
     Route: 065
     Dates: start: 20210430, end: 20210528
  2. COSENTYX [Suspect]
     Active Substance: SECUKINUMAB
     Dosage: 300 MG, QMO (MAINTAINANCE DOSE)
     Route: 058
     Dates: start: 20210625

REACTIONS (3)
  - Hypersensitivity [Recovered/Resolved]
  - Asthma [Unknown]
  - Circumoral swelling [Unknown]

NARRATIVE: CASE EVENT DATE: 20210627
